FAERS Safety Report 14457412 (Version 1)
Quarter: 2018Q1

REPORT INFORMATION
  Report Type: Spontaneous
  Country: US (occurrence: US)
  Receive Date: 20180129
  Receipt Date: 20180129
  Transmission Date: 20180509
  Serious: No
  Sender: FDA-Public Use
  Company Number: None

PATIENT
  Sex: Female
  Weight: 60.75 kg

DRUGS (7)
  1. VITAMIN D3 [Concomitant]
     Active Substance: CHOLECALCIFEROL
  2. WOMEN^S MULTI-VITAMIN [Concomitant]
  3. GLUCOSAMINE CHONDROITIN MSM [Concomitant]
  4. OSELTAMIVIR PHOSPHATE CAPSULE USP 75 MG [Suspect]
     Active Substance: OSELTAMIVIR PHOSPHATE
     Indication: INFLUENZA
     Dosage: ?          QUANTITY:1 CAPSULE(S);?
     Route: 048
     Dates: start: 20180126, end: 20180128
  5. MAGNESIUM [Concomitant]
     Active Substance: MAGNESIUM
  6. TREXIMET [Concomitant]
     Active Substance: NAPROXEN SODIUM\SUMATRIPTAN SUCCINATE
  7. FLAXSEED [Concomitant]
     Active Substance: FLAX SEED

REACTIONS (6)
  - Restlessness [None]
  - Blister [None]
  - Tremor [None]
  - Erythema [None]
  - Insomnia [None]
  - Oral pain [None]

NARRATIVE: CASE EVENT DATE: 20180127
